FAERS Safety Report 7177731-6 (Version None)
Quarter: 2010Q4

REPORT INFORMATION
  Report Type: 
  Country: None (occurrence: None)
  Receive Date: 20101123
  Receipt Date: 20100812
  Transmission Date: 20110411
  Serious: No
  Sender: FDA-Public Use
  Company Number: 017146

PATIENT
  Sex: Female
  Weight: 98.4 kg

DRUGS (6)
  1. CIMZIA [Suspect]
     Indication: CROHN'S DISEASE
     Dosage: (400 MG X/MONTH SUBCUTANEOUS)
     Route: 058
     Dates: start: 20100601
  2. MAXIAMPIL MUCOLITICO [Concomitant]
  3. FOLIC ACID [Concomitant]
  4. VITAMIN D [Concomitant]
  5. VITAMIN B-12 [Concomitant]
  6. METHOTREXATE [Concomitant]

REACTIONS (3)
  - CROHN'S DISEASE [None]
  - DRUG INEFFECTIVE [None]
  - INFREQUENT BOWEL MOVEMENTS [None]
